FAERS Safety Report 9799131 (Version 2)
Quarter: 2014Q1

REPORT INFORMATION
  Report Type: Spontaneous
  Country: US (occurrence: US)
  Receive Date: 20140106
  Receipt Date: 20140106
  Transmission Date: 20141002
  Serious: No
  Sender: FDA-Public Use
  Company Number: US-GILEAD-2010-0032401

PATIENT
  Age: 62 Year
  Sex: Female
  Weight: 82.55 kg

DRUGS (14)
  1. LETAIRIS [Suspect]
     Indication: PULMONARY ARTERIAL HYPERTENSION
     Route: 048
     Dates: start: 20100928
  2. FUROSEMIDE [Concomitant]
  3. POTASSIUM CHLORIDE [Concomitant]
  4. LOSARTAN [Concomitant]
  5. OMEPRAZOLE [Concomitant]
  6. PROPOXYPHEN-APAP [Concomitant]
  7. CYCLOPHOSPHAMIDE [Concomitant]
     Route: 048
  8. HUMIRA [Concomitant]
  9. PREDNISONE [Concomitant]
  10. BONIVA [Concomitant]
  11. ESTRADIOL [Concomitant]
  12. CALCITRIOL [Concomitant]
  13. ZOLPIDEM [Concomitant]
  14. PROMETHAZINE [Concomitant]

REACTIONS (4)
  - Hypotension [Recovered/Resolved]
  - Nausea [Recovered/Resolved]
  - Vomiting [Recovered/Resolved]
  - Dyspnoea [Recovered/Resolved]
